FAERS Safety Report 4721206-8 (Version None)
Quarter: 2005Q3

REPORT INFORMATION
  Report Type: 
  Country: None (occurrence: None)
  Receive Date: 20050722
  Receipt Date: 20050617
  Transmission Date: 20060218
  Serious: Yes (Other)
  Sender: FDA-Public Use
  Company Number: AU-BOEHRINGER INGELHEIM PHARMACEUTICALS, INC.-2005-BP-11004AU

PATIENT
  Sex: Female
  Weight: 76 kg

DRUGS (1)
  1. MICARDIS HCT [Suspect]
     Indication: HYPERTENSION
     Dosage: 40/12.5 MG/MG
     Route: 048
     Dates: start: 20050611, end: 20050624

REACTIONS (3)
  - COUGH [None]
  - DRY MOUTH [None]
  - GLOSSODYNIA [None]
